FAERS Safety Report 24022985 (Version 3)
Quarter: 2024Q2

REPORT INFORMATION
  Report Type: Report from Study
  Country: IN (occurrence: IN)
  Receive Date: 20240627
  Receipt Date: 20240627
  Transmission Date: 20240716
  Serious: No
  Sender: FDA-Public Use
  Company Number: IN-ROCHE-3557477

PATIENT
  Age: 34 Year
  Sex: Male

DRUGS (1)
  1. VABYSMO [Suspect]
     Active Substance: FARICIMAB\FARICIMAB-SVOA
     Indication: Diabetic retinal oedema
     Dosage: NEXT INFUSION START DATE WAS 30/APR/2024
     Route: 050
     Dates: start: 20240124

REACTIONS (3)
  - Vision blurred [Unknown]
  - Eye swelling [Unknown]
  - Off label use [Unknown]

NARRATIVE: CASE EVENT DATE: 20240425
